FAERS Safety Report 5265818-4 (Version None)
Quarter: 2007Q1

REPORT INFORMATION
  Report Type: 
  Country: None (occurrence: None)
  Receive Date: 20070312
  Receipt Date: 20070312
  Transmission Date: 20070707
  Serious: No
  Sender: FDA-Public Use
  Company Number: None

PATIENT
  Sex: Male
  Weight: 24.9478 kg

DRUGS (1)
  1. LINDANE [Suspect]
     Dates: start: 20070205, end: 20070219

REACTIONS (4)
  - DIARRHOEA [None]
  - HEADACHE [None]
  - NAUSEA [None]
  - VOMITING [None]
